FAERS Safety Report 7054513-7 (Version None)
Quarter: 2010Q4

REPORT INFORMATION
  Report Type: 
  Country: None (occurrence: None)
  Receive Date: 20101020
  Receipt Date: 20101011
  Transmission Date: 20110411
  Serious: Yes (Other)
  Sender: FDA-Public Use
  Company Number: US-ALLERGAN-1013073US

PATIENT
  Age: 51 Year
  Sex: Male

DRUGS (10)
  1. RESTASIS [Suspect]
     Indication: DRY EYE
     Dosage: 1 GTT, BID
     Route: 047
     Dates: start: 20100601, end: 20100901
  2. ALLEGRA [Concomitant]
     Indication: SEASONAL ALLERGY
     Dosage: 180 MG, QD
     Route: 048
  3. NIFEDIPINE [Concomitant]
     Indication: HYPERTENSION
     Dosage: 90 MG, QD
     Route: 048
  4. NEXIUM [Concomitant]
     Indication: GASTROOESOPHAGEAL REFLUX DISEASE
     Dosage: 40 MG, QD
     Route: 048
  5. SYNTHROID [Concomitant]
     Indication: FATIGUE
     Dosage: 50 MG, QD
  6. LYRICA [Concomitant]
     Indication: NEUROPATHY PERIPHERAL
     Dosage: 300 MG, BID
  7. BUSPAR [Concomitant]
     Indication: FATIGUE
     Dosage: 10 MG, QD
  8. BUSPAR [Concomitant]
     Indication: ANXIETY
  9. MULTI-VITAMIN [Concomitant]
  10. FISH OIL [Concomitant]

REACTIONS (3)
  - BLOOD GLUCOSE INCREASED [None]
  - STOMATITIS [None]
  - TONGUE ULCERATION [None]
